FAERS Safety Report 13948543 (Version 1)
Quarter: 2017Q3

REPORT INFORMATION
  Report Type: Spontaneous
  Country: FR (occurrence: FR)
  Receive Date: 20170908
  Receipt Date: 20170908
  Transmission Date: 20171128
  Serious: Yes (Other)
  Sender: FDA-Public Use
  Company Number: FR-ASTELLAS-2017US018831

PATIENT
  Age: 5 Year
  Sex: Male
  Weight: 21 kg

DRUGS (7)
  1. MODIGRAF [Suspect]
     Active Substance: TACROLIMUS
     Indication: LIVER TRANSPLANT
     Dosage: 3.2 MG, TWICE DAILY
     Route: 048
     Dates: start: 201507
  2. ROVALCYTE [Concomitant]
     Active Substance: VALGANCICLOVIR HYDROCHLORIDE
     Indication: PRODUCT USED FOR UNKNOWN INDICATION
     Dosage: UNK UNK, UNKNOWN FREQ.
     Route: 065
     Dates: end: 20160908
  3. MODIGRAF [Suspect]
     Active Substance: TACROLIMUS
     Indication: LIVER TRANSPLANT
     Dosage: 3.2 MG, TWICE DAILY
     Route: 048
     Dates: start: 201507
  4. PROGRAF [Suspect]
     Active Substance: TACROLIMUS\TACROLIMUS ANHYDROUS
     Indication: LIVER TRANSPLANT
     Dosage: UNK, UNKNOWN FREQ.
     Route: 048
  5. URSOFALK [Concomitant]
     Active Substance: URSODIOL
     Indication: LIVER TRANSPLANT
     Route: 048
     Dates: start: 20150716
  6. KARDEGIC [Concomitant]
     Active Substance: ASPIRIN LYSINE
     Indication: LIVER TRANSPLANT
     Route: 048
     Dates: start: 20150716
  7. CELLCEPT [Suspect]
     Active Substance: MYCOPHENOLATE MOFETIL\MYCOPHENOLATE MOFETIL HYDROCHLORIDE
     Indication: LIVER TRANSPLANT
     Dosage: UNK UNK, UNKNOWN FREQ.
     Route: 065
     Dates: start: 201507, end: 201608

REACTIONS (23)
  - Lymphadenopathy [Unknown]
  - Medication residue present [Unknown]
  - Epstein-Barr virus infection [Unknown]
  - Alopecia [Unknown]
  - Wrong technique in product usage process [Unknown]
  - Renal tubular acidosis [Unknown]
  - Pancytopenia [Unknown]
  - Transplant rejection [Unknown]
  - Mouth ulceration [Not Recovered/Not Resolved]
  - Cytomegalovirus infection [Unknown]
  - Epstein-Barr virus infection [Unknown]
  - Liver transplant rejection [Unknown]
  - Hypovolaemia [Unknown]
  - Lip oedema [Unknown]
  - Immunosuppressant drug level increased [Unknown]
  - Aphthous ulcer [Unknown]
  - Product physical issue [Unknown]
  - Immunosuppressant drug level [Unknown]
  - Varices oesophageal [Unknown]
  - Weight decreased [Unknown]
  - Inflammation [Unknown]
  - Irritability [Unknown]
  - Hypomagnesaemia [Unknown]

NARRATIVE: CASE EVENT DATE: 20150909
